FAERS Safety Report 9264870 (Version 1)
Quarter: 2013Q2

REPORT INFORMATION
  Report Type: Spontaneous
  Country: US (occurrence: None)
  Receive Date: 20130430
  Receipt Date: 20130430
  Transmission Date: 20140414
  Serious: Yes (Other)
  Sender: FDA-Public Use
  Company Number: None

PATIENT
  Age: 33 Year
  Sex: Female
  Weight: 78.47 kg

DRUGS (2)
  1. QUETIAPINE FUMARATE [Suspect]
     Indication: BIPOLAR DISORDER
     Dosage: 400 MG  1 TAB, NIGHTLY PO
     Route: 048
     Dates: start: 20130419, end: 20130428
  2. QUETIAPINE FUMARATE [Suspect]
     Indication: DEPRESSION
     Dosage: 400 MG  1 TAB, NIGHTLY PO
     Route: 048
     Dates: start: 20130419, end: 20130428

REACTIONS (7)
  - Product substitution issue [None]
  - Product quality issue [None]
  - Dizziness [None]
  - Dizziness [None]
  - Palpitations [None]
  - Heart rate increased [None]
  - Feeling abnormal [None]
